FAERS Safety Report 4760137-4 (Version None)
Quarter: 2005Q3

REPORT INFORMATION
  Report Type: 
  Country: None (occurrence: None)
  Receive Date: 20050902
  Receipt Date: 20050705
  Transmission Date: 20060218
  Serious: No
  Sender: FDA-Public Use
  Company Number: US-GLAXOSMITHKLINE-A0564960A

PATIENT
  Age: 75 Year
  Sex: Male

DRUGS (14)
  1. REQUIP [Suspect]
     Indication: RESTLESS LEGS SYNDROME
     Dosage: .25MG PER DAY
     Route: 048
     Dates: start: 20050623, end: 20050625
  2. FUROSEMIDE [Concomitant]
  3. LIPITOR [Concomitant]
  4. COREG [Concomitant]
  5. LANOXIN [Concomitant]
  6. PROTONIX [Concomitant]
  7. HYDRALLAZINE [Concomitant]
  8. ALTACE [Concomitant]
  9. ISOSORBIDE [Concomitant]
  10. ASCORBIC ACID [Concomitant]
  11. ASPIRIN [Concomitant]
  12. MULTI-VITAMIN [Concomitant]
  13. MAGNESIUM [Concomitant]
  14. CO Q10 [Concomitant]

REACTIONS (5)
  - ANOREXIA [None]
  - FATIGUE [None]
  - INSOMNIA [None]
  - RESTLESS LEGS SYNDROME [None]
  - WEIGHT DECREASED [None]
